FAERS Safety Report 5909911-9 (Version None)
Quarter: 2008Q4

REPORT INFORMATION
  Report Type: 
  Country: None (occurrence: None)
  Receive Date: 20081007
  Receipt Date: 20080929
  Transmission Date: 20090506
  Serious: Yes (Hospitalization, Other)
  Sender: FDA-Public Use
  Company Number: PHHY2008AT21750

PATIENT
  Sex: Female

DRUGS (3)
  1. EXJADE [Suspect]
     Indication: HAEMOSIDEROSIS
     Dosage: UNK
     Route: 048
     Dates: start: 20070523
  2. CONTRACEPTIVES NOS [Concomitant]
     Dosage: UNK
  3. PANTOPRAZOLE SODIUM [Concomitant]
     Dosage: 40 MG, QD
     Route: 048

REACTIONS (3)
  - CAVERNOUS SINUS THROMBOSIS [None]
  - EPILEPSY [None]
  - SUPERIOR SAGITTAL SINUS THROMBOSIS [None]
